FAERS Safety Report 26210022 (Version 1)
Quarter: 2025Q4

REPORT INFORMATION
  Report Type: Spontaneous
  Country: EU (occurrence: EU)
  Receive Date: 20251229
  Receipt Date: 20251229
  Transmission Date: 20260118
  Serious: Yes (Hospitalization)
  Sender: MYLAN
  Company Number: None

PATIENT
  Age: 33 Year
  Sex: Male

DRUGS (4)
  1. LYRICA [Suspect]
     Active Substance: PREGABALIN
     Indication: Product used for unknown indication
     Dosage: 1500 MILLIGRAM, QD
     Route: 061
     Dates: end: 2023
  2. LYRICA [Suspect]
     Active Substance: PREGABALIN
     Dosage: 25 MILLIGRAM, BID (25 MG TWICE A DAY)
     Route: 061
     Dates: start: 2019
  3. LYRICA [Suspect]
     Active Substance: PREGABALIN
     Dosage: 1200 MILLIGRAM, QD
     Route: 061
     Dates: start: 202307, end: 202310
  4. COCAINE [Concomitant]
     Active Substance: COCAINE
     Dosage: UNK

REACTIONS (2)
  - Drug dependence [Recovered/Resolved]
  - Drug withdrawal maintenance therapy [Recovered/Resolved]

NARRATIVE: CASE EVENT DATE: 20230601
